FAERS Safety Report 8599089-8 (Version None)
Quarter: 2012Q3

REPORT INFORMATION
  Report Type: 
  Country: None (occurrence: None)
  Receive Date: 20120816
  Receipt Date: 19940509
  Transmission Date: 20120928
  Serious: Yes (Hospitalization)
  Sender: FDA-Public Use
  Company Number: US-ROCHE-1101976

PATIENT
  Age: 62 Year
  Sex: Female

DRUGS (3)
  1. TRIDIL [Concomitant]
     Route: 041
  2. ACTIVASE [Suspect]
     Indication: ACUTE MYOCARDIAL INFARCTION
  3. HEPARIN [Concomitant]
     Dosage: 25000 UNITS

REACTIONS (1)
  - CHEST PAIN [None]
